FAERS Safety Report 22112957 (Version 3)
Quarter: 2024Q2

REPORT INFORMATION
  Report Type: Spontaneous
  Country: DE (occurrence: DE)
  Receive Date: 20230320
  Receipt Date: 20240402
  Transmission Date: 20240716
  Serious: Yes (Other)
  Sender: FDA-Public Use
  Company Number: DE-LESVI-2023000683

PATIENT
  Age: 35 Year
  Sex: Male
  Weight: 61 kg

DRUGS (25)
  1. LAMOTRIGINE [Suspect]
     Active Substance: LAMOTRIGINE
     Indication: Product used for unknown indication
     Dosage: UNK UNK, ONCE A DAY (2 DAYS TENTH AND ELEVENTH WEEK: 25-0)
     Route: 065
  2. LAMOTRIGINE [Suspect]
     Active Substance: LAMOTRIGINE
     Dosage: 2 DAYS, 25-25: (NOW ALWAYS ONE WEEK)
     Route: 065
  3. LAMOTRIGINE [Suspect]
     Active Substance: LAMOTRIGINE
     Dosage: 50-50 FOR 2 WEEKS (FIFTH WEEK: 50-50 SIXTH WEEK: STILL 50-50 )
     Route: 065
  4. LAMOTRIGINE [Suspect]
     Active Substance: LAMOTRIGINE
     Dosage: 25-50 EIGHTH WEEK: DOSED DOWN TO 50-25
     Route: 065
  5. LAMOTRIGINE [Suspect]
     Active Substance: LAMOTRIGINE
     Dosage: 50-50 SEVENTH WEEK: CONTINUED TO KEEP THE LEVEL OF 50-50
     Route: 065
  6. LAMOTRIGINE [Suspect]
     Active Substance: LAMOTRIGINE
     Dosage: 2 DAYS FOURTH WEEK: 50-25
     Route: 065
  7. LAMOTRIGINE [Suspect]
     Active Substance: LAMOTRIGINE
     Dosage: UNK UNK, ONCE A DAY (0-25: (2WEEKS)
     Route: 065
     Dates: start: 2021
  8. LAMOTRIGINE [Suspect]
     Active Substance: LAMOTRIGINE
     Dosage: UNK UNK, ONCE A DAY (2 DAYS  FIRST 2 WEEKS: 25-0)
     Route: 065
     Dates: start: 20210521
  9. LAMOTRIGINE [Suspect]
     Active Substance: LAMOTRIGINE
     Dosage: 2 DAYS  THIRD WEEK: 25-25
     Route: 065
     Dates: start: 20210521
  10. LACOSAMIDE [Suspect]
     Active Substance: LACOSAMIDE
     Indication: Product used for unknown indication
     Dosage: UNK
     Route: 065
  11. LEVETIRACETAM [Suspect]
     Active Substance: LEVETIRACETAM
     Indication: Product used for unknown indication
     Dosage: UNK
     Route: 065
  12. VALPROATE SODIUM [Suspect]
     Active Substance: VALPROATE SODIUM
     Indication: Product used for unknown indication
     Dosage: UNK
     Route: 065
  13. LEVETIRACETAM [Suspect]
     Active Substance: LEVETIRACETAM
     Indication: Product used for unknown indication
     Dosage: UNK
     Route: 065
  14. PRIMIDONE [Suspect]
     Active Substance: PRIMIDONE
     Indication: Product used for unknown indication
     Dosage: UNK, 750-750
     Route: 065
  15. PRIMIDONE [Suspect]
     Active Substance: PRIMIDONE
     Dosage: UNK, 50-50
     Route: 065
  16. PRIMIDONE [Suspect]
     Active Substance: PRIMIDONE
     Dosage: UNK, 150-150
     Route: 065
  17. PRIMIDONE [Suspect]
     Active Substance: PRIMIDONE
     Dosage: UNK, 250-250
     Route: 065
  18. PRIMIDONE [Suspect]
     Active Substance: PRIMIDONE
     Dosage: UNK, 500-500
     Route: 065
  19. PRIMIDONE [Suspect]
     Active Substance: PRIMIDONE
     Dosage: UNK, 0-62.5
     Route: 065
  20. PRIMIDONE [Suspect]
     Active Substance: PRIMIDONE
     Dosage: UNK, 62.5-62.5
     Route: 065
  21. VALPROATE [Concomitant]
     Active Substance: VALPROIC ACID
     Indication: Product used for unknown indication
     Dosage: UNK
     Route: 065
  22. VALPROATE [Concomitant]
     Active Substance: VALPROIC ACID
     Indication: Product used for unknown indication
     Dosage: UNK
     Route: 065
  23. VALPROIC ACID [Concomitant]
     Active Substance: VALPROIC ACID
     Indication: Product used for unknown indication
     Dosage: UNK
     Route: 065
  24. VALPROAT STADA [Concomitant]
     Indication: Product used for unknown indication
     Dosage: UNK, 500-500
     Route: 065
  25. VALPROAT STADA [Concomitant]
     Dosage: UNK, 750-750
     Route: 065

REACTIONS (22)
  - Petit mal epilepsy [Unknown]
  - Epilepsy [Unknown]
  - Umbilical haemorrhage [Unknown]
  - Aggression [Recovering/Resolving]
  - Abscess limb [Recovering/Resolving]
  - Pain in extremity [Recovering/Resolving]
  - Hypersensitivity [Recovering/Resolving]
  - Loss of libido [Recovering/Resolving]
  - Pruritus [Recovering/Resolving]
  - Ingrown hair [Unknown]
  - Subcutaneous abscess [Recovering/Resolving]
  - Axillary pain [Recovering/Resolving]
  - Lip haemorrhage [Recovered/Resolved]
  - Weight decreased [Unknown]
  - Alopecia [Unknown]
  - Insomnia [Unknown]
  - Hypophagia [Unknown]
  - Muscle twitching [Unknown]
  - Tremor [Unknown]
  - Anger [Unknown]
  - Restlessness [Unknown]
  - Lip injury [Unknown]
